FAERS Safety Report 12630935 (Version 2)
Quarter: 2016Q3

REPORT INFORMATION
  Report Type: Spontaneous
  Country: US (occurrence: US)
  Receive Date: 20160808
  Receipt Date: 20160808
  Transmission Date: 20161109
  Serious: No
  Sender: FDA-Public Use
  Company Number: US-BEH-2015051408

PATIENT
  Sex: Male
  Weight: 10 kg

DRUGS (12)
  1. HIZENTRA [Suspect]
     Active Substance: HUMAN IMMUNOGLOBULIN G
     Indication: TRANSIENT HYPOGAMMAGLOBULINAEMIA OF INFANCY
     Dosage: 1 GM AS DIRECTED
     Route: 058
  2. ACETAMINOPHEN. [Concomitant]
     Active Substance: ACETAMINOPHEN
     Route: 048
  3. ALBUTEROL SULFATE. [Concomitant]
     Active Substance: ALBUTEROL SULFATE
     Dosage: 3ML EVERY 4 HOURS AS NEEDED
  4. PROAIR HFA [Concomitant]
     Active Substance: ALBUTEROL SULFATE
     Dosage: 1 PUFF AS NEEDED
  5. DIPHENHYDRAMINE. [Concomitant]
     Active Substance: DIPHENHYDRAMINE
     Dosage: AS DIRECTED
     Route: 048
  6. EPIPEN [Concomitant]
     Active Substance: EPINEPHRINE
     Indication: ANAPHYLACTIC REACTION
     Route: 030
  7. LMX [Concomitant]
     Active Substance: LIDOCAINE
     Dosage: AS DIRECTED
     Route: 061
  8. BUDESONIDE. [Concomitant]
     Active Substance: BUDESONIDE
     Dosage: 1 VIAL TWICE A DAY
  9. IBUPROFEN. [Concomitant]
     Active Substance: IBUPROFEN
     Dosage: 1 DOSE 4 TIMES A DAY AS NEEDED
     Route: 048
  10. SINGULAIR [Concomitant]
     Active Substance: MONTELUKAST SODIUM
     Route: 048
  11. BENADRYL [Concomitant]
     Active Substance: DIPHENHYDRAMINE HYDROCHLORIDE
     Dosage: 1 DOSE 4 TIMES A DAY AS NEEDED
     Route: 048
  12. PROBIOTIC [Concomitant]
     Active Substance: PROBIOTICS NOS
     Route: 048

REACTIONS (2)
  - Ear infection [Unknown]
  - Diarrhoea [Unknown]
